FAERS Safety Report 5195209-6 (Version None)
Quarter: 2006Q4

REPORT INFORMATION
  Report Type: 
  Country: None (occurrence: None)
  Receive Date: 20061229
  Receipt Date: 20061024
  Transmission Date: 20070319
  Serious: Yes (Hospitalization)
  Sender: FDA-Public Use
  Company Number: AU-PFIZER INC-2006130514

PATIENT
  Sex: Male
  Weight: 107.6 kg

DRUGS (14)
  1. SU-011,248 [Suspect]
     Indication: METASTATIC RENAL CELL CARCINOMA
     Route: 048
     Dates: start: 20050221, end: 20061020
  2. DIAFORMIN [Concomitant]
     Route: 048
     Dates: start: 20020101, end: 20061023
  3. GLICLAZIDE [Concomitant]
     Route: 048
     Dates: start: 20061024
  4. AVAPRO [Concomitant]
     Route: 048
     Dates: start: 20040101
  5. COLCHICINE [Concomitant]
     Route: 048
     Dates: start: 20061023
  6. INDOMETHACIN [Concomitant]
     Dates: start: 20061015, end: 20061020
  7. ACETAMINOPHEN W/ CODEINE [Concomitant]
     Route: 048
     Dates: start: 20061021, end: 20061022
  8. NUROFEN [Concomitant]
     Route: 048
     Dates: start: 20050201
  9. LOPID [Concomitant]
     Route: 048
     Dates: start: 20040101
  10. KENACOMB [Concomitant]
     Route: 061
     Dates: start: 20050706
  11. SAVLON [Concomitant]
     Route: 061
     Dates: start: 20050713
  12. GLUCOSAMINE [Concomitant]
     Route: 048
     Dates: start: 20050710
  13. ADVANTAN [Concomitant]
     Route: 061
     Dates: start: 20050907
  14. PSYLLIUM HYDROPHILIC MUCILLOID [Concomitant]
     Route: 048
     Dates: start: 20050905

REACTIONS (1)
  - RENAL FAILURE [None]
